FAERS Safety Report 10503695 (Version 1)
Quarter: 2014Q4

REPORT INFORMATION
  Report Type: Spontaneous
  Country: US (occurrence: None)
  Receive Date: 20141007
  Receipt Date: 20141007
  Transmission Date: 20150528
  Serious: Yes (Hospitalization)
  Sender: FDA-Public Use
  Company Number: None

PATIENT
  Age: 46 Year
  Sex: Male
  Weight: 42.64 kg

DRUGS (1)
  1. AMPHOTERICIN B. [Suspect]
     Active Substance: AMPHOTERICIN B
     Indication: FUNGAL ENDOCARDITIS
     Route: 042
     Dates: start: 20120212, end: 20120212

REACTIONS (4)
  - Hypertension [None]
  - Respiratory distress [None]
  - Tachypnoea [None]
  - Tachycardia [None]

NARRATIVE: CASE EVENT DATE: 20120212
